FAERS Safety Report 18596890 (Version 1)
Quarter: 2020Q4

REPORT INFORMATION
  Report Type: Spontaneous
  Country: DE (occurrence: DE)
  Receive Date: 20201209
  Receipt Date: 20201209
  Transmission Date: 20210114
  Serious: Yes (Other)
  Sender: FDA-Public Use
  Company Number: DE-MYLANLABS-2020M1099997

PATIENT

DRUGS (14)
  1. ACICLOVIR MYLAN [Suspect]
     Active Substance: ACYCLOVIR
     Indication: PRODUCT USED FOR UNKNOWN INDICATION
     Dosage: UNK, CYCLIC
  2. METHOTREXATE. [Suspect]
     Active Substance: METHOTREXATE
     Dosage: 4000 MG/M2, DAY 1, CYCLE 5 (1 CYCLE = 2 WEEKS)
     Route: 042
  3. PREDNISOLONE. [Suspect]
     Active Substance: PREDNISOLONE
     Indication: CENTRAL NERVOUS SYSTEM LYMPHOMA
     Dosage: 3 MG DAY 3-5, CYCLE 4+6 (1 CYCLE = 3 WEEKS) VIA ICV/INTRACEREBROVENTRICULAR ROUTE
  4. ARA-C [Suspect]
     Active Substance: CYTARABINE
     Dosage: 10 MG, DAY 6, CYCLE 4+6 (1 CYCLE = 3 WEEKS)
     Route: 042
  5. IFOSFAMIDE. [Suspect]
     Active Substance: IFOSFAMIDE
     Indication: PRODUCT USED FOR UNKNOWN INDICATION
     Dosage: 800 MG/M2, DAY 2-4, CYCLE 5 (1 CYCLE = 2 WEEKS)
     Route: 042
  6. RITUXIMAB. [Suspect]
     Active Substance: RITUXIMAB
     Indication: CENTRAL NERVOUS SYSTEM LYMPHOMA
     Dosage: 375 MG/M2, DAY 0, CYCLE 1-3 (1 CYCLE = 2 WEEKS)
     Route: 042
  7. METHOTREXATE. [Suspect]
     Active Substance: METHOTREXATE
     Indication: CENTRAL NERVOUS SYSTEM LYMPHOMA
     Dosage: 4000 MG/M2, DAY 1, CYCLE 1-3 (1 CYCLE = 2 WEEKS)
     Route: 042
  8. PREDNISOLONE. [Suspect]
     Active Substance: PREDNISOLONE
     Indication: CENTRAL NERVOUS SYSTEM LYMPHOMA
     Dosage: 3 MG DAY 2-4, CYCLE 5 (1 CYCLE = 2 WEEKS) VIA ICV/INTRACEREBROVENTRICULAR ROUTE
  9. ARA-C [Suspect]
     Active Substance: CYTARABINE
     Dosage: 10 MG, DAY 5, CYCLE 5 (1 CYCLE = 2 WEEKS)
     Route: 042
  10. SULFAMETHOXAZOL W/TRIMETOPRIM [Suspect]
     Active Substance: SULFAMETHOXAZOLE\TRIMETHOPRIM
     Indication: PRODUCT USED FOR UNKNOWN INDICATION
     Dosage: UNK, CYCLIC
  11. METHOTREXATE. [Suspect]
     Active Substance: METHOTREXATE
     Indication: PRODUCT USED FOR UNKNOWN INDICATION
     Dosage: 2.5 MILLIGRAM, DAY 2-4, CYCLE 5 (1 CYCLE = 2 WEEKS)
     Route: 042
  12. G-CSF [Suspect]
     Active Substance: GRANULOCYTE COLONY-STIMULATING FACTOR NOS
     Indication: PROPHYLAXIS
     Dosage: UNK, CYCLIC
  13. ARA-C [Suspect]
     Active Substance: CYTARABINE
     Indication: CENTRAL NERVOUS SYSTEM LYMPHOMA
     Dosage: 3000 MG/M2, DAY 1-2, CYCLE 4+6 (1 CYCLE = 3 WEEKS)
     Route: 042
  14. IFOSFAMIDE. [Suspect]
     Active Substance: IFOSFAMIDE
     Dosage: 800 MG/M2, DAY 2-4, CYCLE 1-3 (1 CYCLE = 2 WEEKS)
     Route: 042

REACTIONS (1)
  - Transaminases increased [Unknown]
